FAERS Safety Report 4699693-3 (Version None)
Quarter: 2005Q2

REPORT INFORMATION
  Report Type: 
  Country: None (occurrence: None)
  Receive Date: 20050624
  Receipt Date: 20040518
  Transmission Date: 20051028
  Serious: Yes (Hospitalization)
  Sender: FDA-Public Use
  Company Number: JP-ABBOTT-04P-087-0262328-00

PATIENT
  Sex: Male

DRUGS (7)
  1. KALETRA [Suspect]
     Indication: HIV INFECTION
     Route: 048
     Dates: start: 20020722
  2. PEG INTERFERON [Suspect]
     Indication: HEPATITIS C
     Route: 048
     Dates: start: 20021120, end: 20030728
  3. RIBAVIRIN [Suspect]
     Indication: HEPATITIS C
     Dosage: 600 MILLIGRAM/400 MILLIGRAM
     Route: 048
     Dates: start: 20021120, end: 20030728
  4. STAVUDINE [Concomitant]
     Indication: HIV INFECTION
     Dates: start: 20020401
  5. ABACAVIR SULFATE [Concomitant]
     Indication: HIV INFECTION
     Route: 048
     Dates: start: 20020401
  6. EFAVIRENZ [Concomitant]
     Indication: HIV INFECTION
     Route: 048
     Dates: start: 20020401, end: 20020721
  7. COAGULATION FACTOR VIII [Concomitant]
     Indication: FACTOR VIII DEFICIENCY
     Dosage: 4000-5000
     Route: 042
     Dates: start: 20020401

REACTIONS (2)
  - INFLUENZA [None]
  - THROMBOCYTOPENIC PURPURA [None]
